FAERS Safety Report 16166136 (Version 1)
Quarter: 2019Q2

REPORT INFORMATION
  Report Type: Spontaneous
  Country: US (occurrence: US)
  Receive Date: 20190406
  Receipt Date: 20190406
  Transmission Date: 20190711
  Serious: Yes (Life-Threatening, Hospitalization, Other)
  Sender: FDA-Public Use
  Company Number: US-ACCORD-111614

PATIENT
  Age: 69 Year
  Sex: Male

DRUGS (5)
  1. HALOPERIDOL. [Suspect]
     Active Substance: HALOPERIDOL
     Indication: SCHIZOPHRENIA
     Dosage: 150 MG
  2. DEPAKOTE [Suspect]
     Active Substance: DIVALPROEX SODIUM
     Indication: SCHIZOPHRENIA
  3. CLOZAPINE. [Suspect]
     Active Substance: CLOZAPINE
     Indication: SCHIZOPHRENIA
     Dosage: INCREASED TO 200 MG NIGHTLY?IN 50-MG INCREMENTS EVERY 7 TO 11 DAYS
  4. OLANZAPINE. [Suspect]
     Active Substance: OLANZAPINE
     Indication: SCHIZOPHRENIA
  5. HALOPERIDOL. [Suspect]
     Active Substance: HALOPERIDOL
     Indication: SCHIZOPHRENIA
     Dosage: 150 MG

REACTIONS (8)
  - Phlebitis superficial [Unknown]
  - Sepsis [Recovering/Resolving]
  - Klebsiella infection [Recovering/Resolving]
  - Bacterial infection [Recovering/Resolving]
  - Agranulocytosis [Recovered/Resolved]
  - Pneumonia [Recovering/Resolving]
  - Pleural effusion [Recovering/Resolving]
  - Atrial fibrillation [Recovered/Resolved]
